FAERS Safety Report 7727019-7 (Version None)
Quarter: 2011Q3

REPORT INFORMATION
  Report Type: 
  Country: None (occurrence: None)
  Receive Date: 20110902
  Receipt Date: 20110819
  Transmission Date: 20111222
  Serious: No
  Sender: FDA-Public Use
  Company Number: US-B.I. PHARMACEUTICALS,INC./RIDGEFIELD-2011-BP-18523BP

PATIENT
  Age: 73 Year
  Sex: Female
  Weight: 81.2 kg

DRUGS (3)
  1. DILTIAZEM [Concomitant]
     Dosage: 240 MG
     Route: 048
     Dates: start: 20091215
  2. DIOVAN HCT [Concomitant]
     Route: 048
     Dates: start: 20091218
  3. PRADAXA [Suspect]
     Indication: ATRIAL FIBRILLATION
     Dosage: 300 MG
     Dates: start: 20110124, end: 20110707

REACTIONS (2)
  - FATIGUE [None]
  - SOMNOLENCE [None]
